FAERS Safety Report 4368995-2 (Version None)
Quarter: 2004Q2

REPORT INFORMATION
  Report Type: 
  Country: None (occurrence: None)
  Receive Date: 20040527
  Receipt Date: 20040505
  Transmission Date: 20050107
  Serious: Yes (Other)
  Sender: FDA-Public Use
  Company Number: US_0403101234

PATIENT
  Age: 71 Year
  Sex: Male
  Weight: 72 kg

DRUGS (4)
  1. FORTEO [Suspect]
     Indication: OSTEOPOROSIS
     Dosage: 20 UG/1 DAY
     Dates: start: 20040219
  2. SYNTHROID [Concomitant]
  3. AMBIEN [Concomitant]
  4. NEXIUM [Concomitant]

REACTIONS (9)
  - BONE PAIN [None]
  - DIZZINESS [None]
  - HEADACHE [None]
  - MALIGNANT MELANOMA [None]
  - NAUSEA [None]
  - PYREXIA [None]
  - SKIN NEOPLASM EXCISION [None]
  - VOMITING [None]
  - WOUND INFECTION STAPHYLOCOCCAL [None]
